FAERS Safety Report 5888922-6 (Version None)
Quarter: 2008Q3

REPORT INFORMATION
  Report Type: 
  Country: None (occurrence: None)
  Receive Date: 20080919
  Receipt Date: 20080908
  Transmission Date: 20090109
  Serious: Yes (Other)
  Sender: FDA-Public Use
  Company Number: CR-WYE-H05913608

PATIENT
  Age: 65 Year
  Sex: Male

DRUGS (4)
  1. PANTECTA [Suspect]
     Indication: GASTRITIS
     Route: 048
     Dates: start: 20040101
  2. PANTECTA [Suspect]
     Indication: UPPER GASTROINTESTINAL HAEMORRHAGE
  3. PANTECTA [Suspect]
     Indication: CHOLANGITIS
  4. INSULIN [Concomitant]
     Indication: DIABETES MELLITUS
     Dosage: UNSPECIFIED
     Route: 058

REACTIONS (3)
  - GALLBLADDER CANCER [None]
  - HYPOGLYCAEMIA [None]
  - RASH [None]
